FAERS Safety Report 17842431 (Version 1)
Quarter: 2020Q2

REPORT INFORMATION
  Report Type: Spontaneous
  Country: DE (occurrence: DE)
  Receive Date: 20200529
  Receipt Date: 20200529
  Transmission Date: 20200714
  Serious: Yes (Death)
  Sender: FDA-Public Use
  Company Number: NVSC2020DE148058

PATIENT
  Sex: Female

DRUGS (7)
  1. DOXORUBICIN [Suspect]
     Active Substance: DOXORUBICIN
     Indication: DERMATOFIBROSARCOMA PROTUBERANS
     Dosage: UNK
     Route: 065
  2. CARBOPLATIN. [Suspect]
     Active Substance: CARBOPLATIN
     Indication: DERMATOFIBROSARCOMA PROTUBERANS
     Dosage: UNK
     Route: 065
  3. IFOSFAMIDE. [Suspect]
     Active Substance: IFOSFAMIDE
     Indication: DERMATOFIBROSARCOMA PROTUBERANS
     Dosage: UNK
     Route: 065
  4. ETOPOSIDE. [Suspect]
     Active Substance: ETOPOSIDE
     Indication: DERMATOFIBROSARCOMA PROTUBERANS
     Dosage: UNK
     Route: 065
  5. VINCRISTINE [Suspect]
     Active Substance: VINCRISTINE
     Indication: DERMATOFIBROSARCOMA PROTUBERANS
     Dosage: UNK
     Route: 065
  6. ACTINOMYCIN D [Suspect]
     Active Substance: DACTINOMYCIN
     Indication: DERMATOFIBROSARCOMA PROTUBERANS
     Dosage: UNK
     Route: 065
  7. IMATINIB. [Suspect]
     Active Substance: IMATINIB MESYLATE
     Indication: DERMATOFIBROSARCOMA PROTUBERANS
     Route: 065

REACTIONS (3)
  - Malignant neoplasm progression [Fatal]
  - Dermatofibrosarcoma protuberans [Fatal]
  - Product use in unapproved indication [Unknown]
